FAERS Safety Report 9727174 (Version 1)
Quarter: 2013Q4

REPORT INFORMATION
  Report Type: Spontaneous
  Country: US (occurrence: US)
  Receive Date: 20131203
  Receipt Date: 20131203
  Transmission Date: 20140711
  Serious: No
  Sender: FDA-Public Use
  Company Number: US-BRISTOL-MYERS SQUIBB COMPANY-19420454

PATIENT
  Age: 57 Year
  Sex: Female
  Weight: 53.51 kg

DRUGS (1)
  1. KOMBIGLYZE XR [Suspect]
     Indication: DIABETES MELLITUS
     Dosage: 1DF:2.5 MG/1000 MG
     Dates: start: 201307

REACTIONS (2)
  - Headache [Unknown]
  - Diarrhoea [Unknown]
